FAERS Safety Report 25845620 (Version 2)
Quarter: 2025Q4

REPORT INFORMATION
  Report Type: Report from Study
  Country: US (occurrence: US)
  Receive Date: 20250925
  Receipt Date: 20251014
  Transmission Date: 20260119
  Serious: No
  Sender: ACADIA PHARMACEUTICALS
  Company Number: US-ACADIA PHARMACEUTICALS INC.-ACA-2025-TRF-010508

PATIENT
  Sex: Male

DRUGS (5)
  1. DAYBUE [Suspect]
     Active Substance: TROFINETIDE
     Indication: Rett syndrome
     Dosage: 40 MILLILITER, BID
     Dates: start: 202310
  2. RUFINAMIDE [Concomitant]
     Active Substance: RUFINAMIDE
  3. VALPROIC ACID [Concomitant]
     Active Substance: VALPROIC ACID
  4. CLOBAZAM [Concomitant]
     Active Substance: CLOBAZAM
  5. CARNITINE [Concomitant]
     Active Substance: CARNITINE

REACTIONS (2)
  - Gastrointestinal tube insertion [Not Recovered/Not Resolved]
  - Diarrhoea [Not Recovered/Not Resolved]
